FAERS Safety Report 5593548-8 (Version None)
Quarter: 2008Q1

REPORT INFORMATION
  Report Type: 
  Country: None (occurrence: None)
  Receive Date: 20080116
  Receipt Date: 20080109
  Transmission Date: 20080703
  Serious: Yes (Hospitalization)
  Sender: FDA-Public Use
  Company Number: DE-BRISTOL-MYERS SQUIBB COMPANY-14039721

PATIENT
  Sex: Male

DRUGS (3)
  1. ERBITUX [Suspect]
     Indication: ADENOCARCINOMA
  2. IRINOTECAN HCL [Suspect]
     Indication: ADENOCARCINOMA
  3. MARCUMAR [Concomitant]

REACTIONS (3)
  - DERMATITIS ACNEIFORM [None]
  - SKIN HAEMORRHAGE [None]
  - SKIN NECROSIS [None]
